FAERS Safety Report 8875421 (Version 12)
Quarter: 2019Q4

REPORT INFORMATION
  Report Type: Report from Study
  Country: US (occurrence: US)
  Receive Date: 20121029
  Receipt Date: 20191016
  Transmission Date: 20200122
  Serious: Yes (Hospitalization)
  Sender: FDA-Public Use
  Company Number: US-PFIZER INC-2012249211

PATIENT
  Age: 13 Year
  Sex: Female
  Weight: 53 kg

DRUGS (2)
  1. VICKS NYQUIL [Concomitant]
     Active Substance: ACETAMINOPHEN\DEXTROMETHORPHAN HYDROBROMIDE\DOXYLAMINE SUCCINATE
     Indication: NASAL CONGESTION
     Dosage: 30 ML, AT TWO TABLESPOONFULS IN THE EVENING
     Route: 048
     Dates: start: 20121004, end: 20121004
  2. DESVENLAFAXINE SUCCINATE MONOHYDRATE [Suspect]
     Active Substance: DESVENLAFAXINE SUCCINATE
     Indication: MAJOR DEPRESSION
     Dosage: 25 MG, 1X/DAY IN THE MORNING
     Route: 048
     Dates: start: 20120917, end: 20121005

REACTIONS (6)
  - Aggression [Recovered/Resolved]
  - Hallucination, auditory [Recovering/Resolving]
  - Irritability [Recovered/Resolved]
  - Euphoric mood [Recovered/Resolved]
  - Frustration tolerance decreased [Recovered/Resolved]
  - Insomnia [Recovered/Resolved]

NARRATIVE: CASE EVENT DATE: 20121004
